FAERS Safety Report 12425182 (Version 2)
Quarter: 2016Q3

REPORT INFORMATION
  Report Type: Report from Study
  Country: DE (occurrence: FR)
  Receive Date: 20160601
  Receipt Date: 20160727
  Transmission Date: 20161109
  Serious: Yes (Death, Other)
  Sender: FDA-Public Use
  Company Number: DE-ACTELION-A-US2016-129828

PATIENT
  Age: 34 Year
  Sex: Male

DRUGS (2)
  1. VENTAVIS [Suspect]
     Active Substance: ILOPROST
     Indication: PULMONARY HYPERTENSION
     Dosage: 5 MCG, 6/D
     Route: 055
     Dates: start: 20151216
  2. OXYGEN. [Concomitant]
     Active Substance: OXYGEN
     Dosage: 9 L, / 24 HOURS

REACTIONS (4)
  - Vomiting [Unknown]
  - Fatigue [Unknown]
  - Death [Fatal]
  - Underdose [Unknown]

NARRATIVE: CASE EVENT DATE: 201601
